FAERS Safety Report 5465383-2 (Version None)
Quarter: 2007Q3

REPORT INFORMATION
  Report Type: 
  Country: None (occurrence: None)
  Receive Date: 20070920
  Receipt Date: 20070920
  Transmission Date: 20080115
  Serious: Yes (Hospitalization)
  Sender: FDA-Public Use
  Company Number: None

PATIENT
  Sex: Female
  Weight: 83.9154 kg

DRUGS (11)
  1. ERBITUX [Suspect]
     Dosage: 400 MG/M^2, ONCE I.V. 250 MG/M^2, WEEKLY I.V.
     Route: 042
     Dates: start: 20070815, end: 20070912
  2. ERBITUX [Suspect]
     Dosage: 400 MG/M^2, ONCE I.V. 250 MG/M^2, WEEKLY I.V.
     Route: 042
     Dates: start: 20070808
  3. PREDNISONE [Concomitant]
  4. BENADRYL [Concomitant]
  5. OXYCONTIN [Concomitant]
  6. TESSALON [Concomitant]
  7. ROBITUSSIN A-C [Concomitant]
  8. OXYCODONE HCL [Concomitant]
  9. SENNA [Concomitant]
  10. LEVOTHYROXINE SODIUM [Concomitant]
  11. HYDROCHLOROTHIAZIDE [Concomitant]

REACTIONS (1)
  - MYOCARDIAL INFARCTION [None]
